FAERS Safety Report 17176916 (Version 8)
Quarter: 2020Q3

REPORT INFORMATION
  Report Type: Spontaneous
  Country: US (occurrence: US)
  Receive Date: 20191219
  Receipt Date: 20200814
  Transmission Date: 20201102
  Serious: Yes (Other)
  Sender: FDA-Public Use
  Company Number: US-AKCEA THERAPEUTICS-2019IS001657

PATIENT
  Age: 77 Year
  Sex: Female
  Weight: 68.9 kg

DRUGS (17)
  1. BROMFENAC [Concomitant]
     Active Substance: BROMFENAC SODIUM
  2. MAGNESIUM [Concomitant]
     Active Substance: MAGNESIUM
     Route: 048
  3. LASIX [Concomitant]
     Active Substance: FUROSEMIDE
     Route: 048
  4. TEGSEDI [Suspect]
     Active Substance: INOTERSEN SODIUM
     Route: 058
     Dates: start: 201910, end: 20191018
  5. ASPIRIN. [Concomitant]
     Active Substance: ASPIRIN
     Route: 048
  6. CALCIUM MAGNESIUM ZINC PLUS VITAMIN D [Concomitant]
     Route: 048
  7. TEGSEDI [Suspect]
     Active Substance: INOTERSEN SODIUM
     Indication: FAMILIAL AMYLOIDOSIS
     Route: 058
     Dates: start: 20190315
  8. ISSD (INTEGRATED SYRINGE SAFETY DEVICE) [Suspect]
     Active Substance: DEVICE
  9. DOXYCYCLINE. [Concomitant]
     Active Substance: DOXYCYCLINE
     Route: 048
  10. LISINOPRIL. [Concomitant]
     Active Substance: LISINOPRIL
     Route: 048
  11. VITAMIN A [Concomitant]
     Active Substance: VITAMIN A
     Route: 048
  12. ROSUVASTATIN. [Concomitant]
     Active Substance: ROSUVASTATIN
     Route: 048
  13. VITAMIN D3 [Concomitant]
     Active Substance: CHOLECALCIFEROL
     Route: 048
  14. METOPROLOL. [Concomitant]
     Active Substance: METOPROLOL
     Route: 048
  15. OMEPRAZOLE. [Concomitant]
     Active Substance: OMEPRAZOLE
     Route: 048
  16. TEGSEDI [Suspect]
     Active Substance: INOTERSEN SODIUM
     Route: 058
     Dates: start: 20190315, end: 20191008
  17. TEGSEDI [Suspect]
     Active Substance: INOTERSEN SODIUM
     Route: 058

REACTIONS (8)
  - White blood cell count decreased [Not Recovered/Not Resolved]
  - Drug ineffective [Unknown]
  - Oedema peripheral [Unknown]
  - Fatigue [Unknown]
  - Glomerulonephritis [Unknown]
  - Thrombocytopenia [Recovered/Resolved]
  - Urine protein/creatinine ratio abnormal [Unknown]
  - Proteinuria [Not Recovered/Not Resolved]

NARRATIVE: CASE EVENT DATE: 20190805
